FAERS Safety Report 7319690-9 (Version None)
Quarter: 2011Q1

REPORT INFORMATION
  Report Type: 
  Country: None (occurrence: None)
  Receive Date: 20110228
  Receipt Date: 20100802
  Transmission Date: 20110831
  Serious: No
  Sender: FDA-Public Use
  Company Number: A0873441A

PATIENT
  Age: 38 Year
  Sex: Female

DRUGS (7)
  1. MULTIVITAMIN [Concomitant]
  2. CALCIUM [Concomitant]
  3. MAGNESIUM [Concomitant]
  4. VITAMIN B-12 [Concomitant]
  5. PRISTIQ [Concomitant]
  6. LAMOTRIGINE [Suspect]
     Indication: BIPOLAR DISORDER
     Dosage: 25MG PER DAY
     Route: 048
     Dates: start: 20100720
  7. IRON [Concomitant]

REACTIONS (6)
  - FATIGUE [None]
  - SOMNOLENCE [None]
  - DISORIENTATION [None]
  - AMNESIA [None]
  - INCREASED APPETITE [None]
  - HANGOVER [None]
